FAERS Safety Report 5897934-8 (Version None)
Quarter: 2008Q3

REPORT INFORMATION
  Report Type: 
  Country: None (occurrence: None)
  Receive Date: 20080923
  Receipt Date: 20080915
  Transmission Date: 20090109
  Serious: Yes (Hospitalization)
  Sender: FDA-Public Use
  Company Number: TIF2008A00106

PATIENT
  Age: 46 Year
  Sex: Female

DRUGS (1)
  1. LIMPIDEX (LANSOPRAZOLE) [Suspect]
     Indication: VOMITING
     Dosage: 30 MG PER ORAL
     Route: 048

REACTIONS (5)
  - HYPOKALAEMIA [None]
  - METABOLIC ALKALOSIS [None]
  - NO THERAPEUTIC RESPONSE [None]
  - RHABDOMYOLYSIS [None]
  - SINUS BRADYCARDIA [None]
